FAERS Safety Report 18128012 (Version 1)
Quarter: 2020Q3

REPORT INFORMATION
  Report Type: Spontaneous
  Country: US (occurrence: US)
  Receive Date: 20200810
  Receipt Date: 20200810
  Transmission Date: 20201103
  Serious: Yes (Other)
  Sender: FDA-Public Use
  Company Number: US-ROCHE-2653565

PATIENT

DRUGS (3)
  1. RITUXAN [Suspect]
     Active Substance: RITUXIMAB
     Indication: NODULAR LYMPHOCYTE PREDOMINANT HODGKIN LYMPHOMA
     Route: 065
     Dates: start: 19960101
  2. BENDAMUSTINE [Concomitant]
     Active Substance: BENDAMUSTINE
  3. RITUXAN [Suspect]
     Active Substance: RITUXIMAB
     Route: 065
     Dates: start: 20180801

REACTIONS (9)
  - Feeling abnormal [Unknown]
  - Lung disorder [Unknown]
  - Neoplasm [Unknown]
  - Fatigue [Unknown]
  - Throat irritation [Unknown]
  - Stress [Unknown]
  - Pruritus [Unknown]
  - Positron emission tomogram abnormal [Unknown]
  - Eye pruritus [Unknown]

NARRATIVE: CASE EVENT DATE: 20200803
